FAERS Safety Report 7967715-X (Version None)
Quarter: 2011Q4

REPORT INFORMATION
  Report Type: 
  Country: None (occurrence: None)
  Receive Date: 20111208
  Receipt Date: 20111208
  Transmission Date: 20120403
  Serious: Yes (Other)
  Sender: FDA-Public Use
  Company Number: None

PATIENT
  Age: 17 Year
  Sex: Male
  Weight: 50 kg

DRUGS (2)
  1. NUTROPIN [Suspect]
     Indication: BODY HEIGHT BELOW NORMAL
     Dosage: 2 MG DAILY SC
     Route: 058
     Dates: start: 20110125, end: 20110206
  2. NUTROPIN [Suspect]
     Indication: GROWTH HORMONE DEFICIENCY
     Dosage: 2 MG DAILY SC
     Route: 058
     Dates: start: 20110125, end: 20110206

REACTIONS (2)
  - GAIT DISTURBANCE [None]
  - ARTHRALGIA [None]
